FAERS Safety Report 16945485 (Version 1)
Quarter: 2019Q4

REPORT INFORMATION
  Report Type: Spontaneous
  Country: US (occurrence: US)
  Receive Date: 20191022
  Receipt Date: 20191022
  Transmission Date: 20200122
  Serious: No
  Sender: FDA-Public Use
  Company Number: US-ENDO PHARMACEUTICALS INC-2018-042762

PATIENT

DRUGS (2)
  1. VALSTAR [Suspect]
     Active Substance: VALRUBICIN
     Dosage: 800 MG, WEEKLY, FOR SIX WEEKS
     Route: 043
  2. VALSTAR [Suspect]
     Active Substance: VALRUBICIN
     Indication: BLADDER CANCER STAGE 0, WITH CANCER IN SITU
     Dosage: 800 MG, WEEKLY, FOR SIX WEEKS
     Route: 043

REACTIONS (1)
  - Drug ineffective [Recovered/Resolved]
